FAERS Safety Report 19455096 (Version 1)
Quarter: 2021Q2

REPORT INFORMATION
  Report Type: Spontaneous
  Country: FR (occurrence: FR)
  Receive Date: 20210623
  Receipt Date: 20210623
  Transmission Date: 20210717
  Serious: Yes (Death, Other)
  Sender: FDA-Public Use
  Company Number: FR-PFIZER INC-2021342443

PATIENT
  Age: 61 Year
  Sex: Female
  Weight: 86 kg

DRUGS (5)
  1. CANDESARTAN/HYDROCHLOROTHIAZIDE BIOGARAN [Concomitant]
     Dosage: 1 DF, 1X/DAY
  2. COMIRNATY [Suspect]
     Active Substance: TOZINAMERAN
     Indication: COVID-19 IMMUNISATION
     Dosage: SINGLE DOSE
     Route: 030
     Dates: start: 20210318, end: 20210318
  3. ATENOLOL ACCORD [Concomitant]
     Active Substance: ATENOLOL
     Dosage: 50 MG, 1X/DAY
  4. ENDOXAN [CYCLOPHOSPHAMIDE] [Suspect]
     Active Substance: CYCLOPHOSPHAMIDE
  5. EPIRUBICIN HCL [Suspect]
     Active Substance: EPIRUBICIN HYDROCHLORIDE

REACTIONS (9)
  - Splenic infarction [Unknown]
  - Cardio-respiratory arrest [Unknown]
  - Adrenal mass [Unknown]
  - Hepatic infarction [Unknown]
  - Acute myocardial infarction [Fatal]
  - Ventricular fibrillation [Unknown]
  - Renal infarct [Unknown]
  - Chest pain [Unknown]
  - Intestinal ischaemia [Unknown]

NARRATIVE: CASE EVENT DATE: 20210319
